FAERS Safety Report 6013414-3 (Version None)
Quarter: 2008Q4

REPORT INFORMATION
  Report Type: 
  Country: None (occurrence: None)
  Receive Date: 20081219
  Receipt Date: 20081208
  Transmission Date: 20090506
  Serious: Yes (Other)
  Sender: FDA-Public Use
  Company Number: US-PFIZER INC-2008045295

PATIENT
  Sex: Male

DRUGS (1)
  1. VIAGRA [Suspect]
     Indication: ERECTILE DYSFUNCTION
     Route: 048

REACTIONS (4)
  - ANXIETY [None]
  - BLINDNESS [None]
  - OPTIC ISCHAEMIC NEUROPATHY [None]
  - RETINAL VEIN OCCLUSION [None]
